FAERS Safety Report 11515675 (Version 1)
Quarter: 2015Q3

REPORT INFORMATION
  Report Type: Spontaneous
  Country: US (occurrence: US)
  Receive Date: 20150916
  Receipt Date: 20150916
  Transmission Date: 20151125
  Serious: Yes (Hospitalization, Other)
  Sender: FDA-Public Use
  Company Number: US-PFIZER INC-0016521301PHAMED

PATIENT
  Age: 80 Year
  Sex: Female

DRUGS (9)
  1. LEVOXYL [Interacting]
     Active Substance: LEVOTHYROXINE SODIUM
     Indication: THYROID DISORDER
  2. BABY ASPIRIN [Interacting]
     Active Substance: ASPIRIN
     Indication: ILL-DEFINED DISORDER
  3. PAXIL [Interacting]
     Active Substance: PAROXETINE HYDROCHLORIDE
     Indication: DEPRESSION
  4. XANAX [Suspect]
     Active Substance: ALPRAZOLAM
     Indication: ANXIETY
     Route: 048
  5. LIPITOR [Interacting]
     Active Substance: ATORVASTATIN CALCIUM
     Indication: HYPERCHOLESTEROLAEMIA
  6. LANOXIN [Interacting]
     Active Substance: DIGOXIN
     Indication: CARDIAC DISORDER
     Dosage: 0000.125 OR RANGE (LOW TO HI):NULL TO NULL MG FREQUENCY:002 EVERY 01 DAYS
     Route: 048
  7. THEO-24 [Interacting]
     Active Substance: THEOPHYLLINE ANHYDROUS
     Indication: ASTHMA
  8. PREMARIN [Interacting]
     Active Substance: ESTROGENS, CONJUGATED
     Indication: ILL-DEFINED DISORDER
  9. NICOTINIC ACID [Interacting]
     Active Substance: NIACIN
     Indication: ILL-DEFINED DISORDER

REACTIONS (10)
  - Skin lesion [Unknown]
  - Skin cancer [Unknown]
  - Seizure [Unknown]
  - Alopecia [Unknown]
  - Insomnia [Unknown]
  - Myalgia [Unknown]
  - Hypoaesthesia [Unknown]
  - Rash [Unknown]
  - Breast mass [Unknown]
  - Drug interaction [Unknown]
